FAERS Safety Report 6917236-8 (Version None)
Quarter: 2010Q3

REPORT INFORMATION
  Report Type: 
  Country: None (occurrence: None)
  Receive Date: 20100805
  Receipt Date: 20100729
  Transmission Date: 20110219
  Serious: Yes (Hospitalization)
  Sender: FDA-Public Use
  Company Number: TPA2010A04310

PATIENT
  Age: 52 Year
  Sex: Male

DRUGS (1)
  1. ACTOS [Suspect]
     Dosage: PER ORAL
     Route: 048

REACTIONS (2)
  - MYOCARDIAL INFARCTION [None]
  - STRESS [None]
